FAERS Safety Report 7335315-0 (Version None)
Quarter: 2011Q1

REPORT INFORMATION
  Report Type: 
  Country: None (occurrence: None)
  Receive Date: 20110307
  Receipt Date: 20110302
  Transmission Date: 20110831
  Serious: Yes (Death)
  Sender: FDA-Public Use
  Company Number: PHHY2011US15467

PATIENT

DRUGS (2)
  1. ZOMETA [Suspect]
     Dosage: 4 MG, UNK
  2. ZOMETA [Suspect]
     Dosage: UNK
     Dates: start: 20100901

REACTIONS (1)
  - NEOPLASM MALIGNANT [None]
